FAERS Safety Report 4764847-4 (Version None)
Quarter: 2005Q3

REPORT INFORMATION
  Report Type: 
  Country: None (occurrence: None)
  Receive Date: 20050909
  Receipt Date: 20050829
  Transmission Date: 20060218
  Serious: Yes (Hospitalization)
  Sender: FDA-Public Use
  Company Number: CH-BRISTOL-MYERS SQUIBB COMPANY-13095641

PATIENT

DRUGS (4)
  1. REYATAZ [Suspect]
     Indication: HIV INFECTION
     Dates: start: 20050406
  2. RITONAVIR [Concomitant]
     Dates: start: 20050406
  3. TENOFOVIR [Concomitant]
     Dates: start: 20050406
  4. EMTRICITABINE [Concomitant]
     Dates: start: 20050406

REACTIONS (1)
  - NEPHRITIS INTERSTITIAL [None]
